FAERS Safety Report 8479189-3 (Version None)
Quarter: 2012Q2

REPORT INFORMATION
  Report Type: 
  Country: None (occurrence: None)
  Receive Date: 20120629
  Receipt Date: 20120621
  Transmission Date: 20120825
  Serious: Yes (Other)
  Sender: FDA-Public Use
  Company Number: US-JNJFOC-20120604989

PATIENT
  Age: 73 Year

DRUGS (2)
  1. REMICADE [Suspect]
     Route: 042
     Dates: start: 20050301
  2. REMICADE [Suspect]
     Indication: PRODUCT USED FOR UNKNOWN INDICATION
     Route: 042
     Dates: start: 20100114

REACTIONS (1)
  - NEOPLASM MALIGNANT [None]
